FAERS Safety Report 5259029-6 (Version None)
Quarter: 2007Q1

REPORT INFORMATION
  Report Type: 
  Country: None (occurrence: None)
  Receive Date: 20070305
  Receipt Date: 20070220
  Transmission Date: 20070707
  Serious: Yes (Death)
  Sender: FDA-Public Use
  Company Number: PRI050412007011

PATIENT
  Age: 60 Year
  Sex: Female

DRUGS (10)
  1. OXALIPLATIN [Suspect]
     Indication: COLON CANCER METASTATIC
     Dosage: 157MG IV
     Route: 042
     Dates: start: 20070213, end: 20070213
  2. BEVACIZUMAB (GENENTECH) [Suspect]
     Indication: COLON CANCER METASTATIC
     Dosage: 445MG IV
     Route: 042
     Dates: start: 20070213, end: 20070213
  3. FLUOROURACIL [Suspect]
     Indication: COLON CANCER METASTATIC
     Dosage: 740MG IVP/4440MG IV
     Route: 042
     Dates: start: 20070213, end: 20070213
  4. LEUCOVORIN CALCIUM [Suspect]
     Indication: COLON CANCER METASTATIC
     Dosage: 740MG IV
     Route: 042
     Dates: start: 20070213, end: 20070213
  5. VALSARTAN [Concomitant]
  6. EZETIMIBE [Concomitant]
  7. NIACIN [Concomitant]
  8. ASPIRIN [Concomitant]
  9. MELOXICAM [Concomitant]
  10. FLONASE [Concomitant]

REACTIONS (6)
  - CORONARY ARTERY OCCLUSION [None]
  - METABOLIC DISORDER [None]
  - MYOCARDIAL INFARCTION [None]
  - PULMONARY EMBOLISM [None]
  - STRESS [None]
  - SUDDEN CARDIAC DEATH [None]
